FAERS Safety Report 7953840-6 (Version None)
Quarter: 2011Q4

REPORT INFORMATION
  Report Type: 
  Country: None (occurrence: None)
  Receive Date: 20111202
  Receipt Date: 20111128
  Transmission Date: 20120403
  Serious: Yes (Other)
  Sender: FDA-Public Use
  Company Number: US-JNJFOC-20111000895

PATIENT
  Age: 88 Year
  Sex: Female

DRUGS (9)
  1. LEVOTHYROXINE SODIUM [Concomitant]
     Indication: THYROID DISORDER
     Dosage: ^MG UNSPECIFIED^, TAKING ^ONE PLUS YEARS^.
     Route: 065
  2. BENADRYL [Suspect]
     Indication: SLEEP DISORDER THERAPY
     Route: 048
  3. BENADRYL [Suspect]
     Route: 048
  4. BENADRYL [Suspect]
     Route: 048
  5. DRUGS FOR TREATMENT OF BONE DISEASES [Concomitant]
     Indication: BONE DISORDER
     Dosage: ^MG UNSPECIFIED^, ^3 MONTHS^
     Route: 065
     Dates: start: 20110701
  6. BENADRYL [Suspect]
     Route: 048
  7. METOPROLOL [Concomitant]
     Indication: CARDIAC DISORDER
     Dosage: INTERVAL-20YEARS
     Route: 065
     Dates: start: 19910101
  8. UROLOGICALS [Concomitant]
     Indication: BLADDER DISORDER
     Dosage: ^MG UNSPECIFIED^, ^FOREVER^
     Route: 065
  9. VITAMIN B COMPLEX CAP [Concomitant]
     Indication: PRODUCT USED FOR UNKNOWN INDICATION
     Route: 065
     Dates: start: 20110401

REACTIONS (2)
  - OFF LABEL USE [None]
  - DEPENDENCE [None]
